FAERS Safety Report 4267073-0 (Version None)
Quarter: 2004Q1

REPORT INFORMATION
  Report Type: 
  Country: None (occurrence: None)
  Receive Date: 20040108
  Receipt Date: 20030430
  Transmission Date: 20041129
  Serious: Yes (Other)
  Sender: FDA-Public Use
  Company Number: PHBS2003BE04727

PATIENT
  Age: 72 Year
  Sex: Male

DRUGS (2)
  1. LAMISIL [Suspect]
     Indication: NAIL TINEA
     Dosage: 250 MG/D
     Route: 048
     Dates: start: 20020101, end: 20030101
  2. SELECTOL [Concomitant]

REACTIONS (2)
  - MEDICATION ERROR [None]
  - VASCULITIS [None]
